FAERS Safety Report 15672635 (Version 6)
Quarter: 2019Q3

REPORT INFORMATION
  Report Type: Report from Study
  Country: US (occurrence: US)
  Receive Date: 20181129
  Receipt Date: 20190718
  Transmission Date: 20191004
  Serious: Yes (Other)
  Sender: FDA-Public Use
  Company Number: US-TESARO, INC-US-2017TSO01579

PATIENT
  Age: 73 Year
  Sex: Female

DRUGS (8)
  1. AVASTIN [Concomitant]
     Active Substance: BEVACIZUMAB
     Indication: PRODUCT USED FOR UNKNOWN INDICATION
  2. ZEJULA [Suspect]
     Active Substance: NIRAPARIB
     Dosage: 200 MG, PM (WITH OR W/O FOOD)
     Route: 048
  3. ELIQUIS [Concomitant]
     Active Substance: APIXABAN
     Indication: PRODUCT USED FOR UNKNOWN INDICATION
     Dosage: UNK
  4. ZEJULA [Suspect]
     Active Substance: NIRAPARIB
     Dosage: 200 MG, QD
     Route: 048
     Dates: start: 20180722
  5. ZEJULA [Suspect]
     Active Substance: NIRAPARIB
     Dosage: 200 MG, QD
     Route: 048
     Dates: end: 20170706
  6. ZEJULA [Suspect]
     Active Substance: NIRAPARIB
     Dosage: 200 MG, QD
     Route: 048
  7. ZEJULA [Suspect]
     Active Substance: NIRAPARIB
     Indication: OVARIAN CANCER
     Dosage: 300 MG, QD
     Route: 048
     Dates: start: 20170617
  8. ZEJULA [Suspect]
     Active Substance: NIRAPARIB
     Dosage: 200 MG, QD
     Route: 048
     Dates: end: 20180713

REACTIONS (44)
  - Thrombocytopenia [Not Recovered/Not Resolved]
  - Jugular vein thrombosis [Unknown]
  - Loss of proprioception [Unknown]
  - Positron emission tomogram abnormal [Unknown]
  - Balance disorder [Not Recovered/Not Resolved]
  - White blood cell count decreased [Not Recovered/Not Resolved]
  - Angioedema [Unknown]
  - Hypoaesthesia [Unknown]
  - Anaemia macrocytic [Unknown]
  - Mean cell haemoglobin increased [Unknown]
  - Fatigue [Not Recovered/Not Resolved]
  - Blood creatine increased [Recovering/Resolving]
  - Haemoglobin decreased [Recovering/Resolving]
  - Nasopharyngitis [Not Recovered/Not Resolved]
  - Mean cell volume increased [Unknown]
  - Blood urea increased [Recovering/Resolving]
  - Neoplasm progression [Unknown]
  - Decreased appetite [Recovered/Resolved]
  - Anxiety [Unknown]
  - Tendon disorder [Unknown]
  - Thrombosis [Unknown]
  - Red blood cell count decreased [Recovering/Resolving]
  - Neuropathy peripheral [Unknown]
  - Haemorrhage [Unknown]
  - Pain in extremity [Unknown]
  - Gastrooesophageal reflux disease [Not Recovered/Not Resolved]
  - Retinal haemorrhage [Unknown]
  - Rotator cuff syndrome [Unknown]
  - Sensory disturbance [Unknown]
  - Appetite disorder [Not Recovered/Not Resolved]
  - Retinal vein occlusion [Unknown]
  - Abdominal discomfort [Not Recovered/Not Resolved]
  - Blood glucose increased [Unknown]
  - Glomerular filtration rate decreased [Unknown]
  - Tendon rupture [Unknown]
  - Haematocrit decreased [Unknown]
  - Nausea [Not Recovered/Not Resolved]
  - Asthenia [Unknown]
  - Hypertension [Recovered/Resolved]
  - Vision blurred [Unknown]
  - Proteinuria [Unknown]
  - Emotional distress [Unknown]
  - Insomnia [Not Recovered/Not Resolved]
  - Anaemia [Unknown]

NARRATIVE: CASE EVENT DATE: 201706
